FAERS Safety Report 7833271-X (Version None)
Quarter: 2011Q4

REPORT INFORMATION
  Report Type: 
  Country: None (occurrence: None)
  Receive Date: 20111024
  Receipt Date: 20111018
  Transmission Date: 20120403
  Serious: Yes (Hospitalization, Other)
  Sender: FDA-Public Use
  Company Number: US-AMGEN-USASP2011053842

PATIENT
  Age: 75 Year
  Sex: Male
  Weight: 85.3 kg

DRUGS (5)
  1. PREDNISONE [Concomitant]
  2. LASIX [Concomitant]
  3. NPLATE [Suspect]
     Indication: IDIOPATHIC THROMBOCYTOPENIC PURPURA
     Dates: start: 20090107
  4. PRAVACHOL [Concomitant]
  5. NITROSTAT [Concomitant]

REACTIONS (2)
  - CARDIAC DISORDER [None]
  - PNEUMONIA [None]
